FAERS Safety Report 23935154 (Version 1)
Quarter: 2024Q2

REPORT INFORMATION
  Report Type: Report from Study
  Country: US (occurrence: US)
  Receive Date: 20240604
  Receipt Date: 20240604
  Transmission Date: 20240716
  Serious: Yes (Other)
  Sender: FDA-Public Use
  Company Number: US-ARGENX-2024-ARGX-US003220

PATIENT

DRUGS (1)
  1. VYVGART [Suspect]
     Active Substance: EFGARTIGIMOD ALFA-FCAB
     Indication: Myasthenia gravis
     Dosage: 680 MG, 1/WEEK FOR 4 WEEKS REPEAT CYCLE 6 WEEKS FROM FOURTH DOSE (400MG/20ML)
     Route: 042
     Dates: start: 202401, end: 20240430

REACTIONS (3)
  - Myasthenia gravis [Not Recovered/Not Resolved]
  - Fall [Unknown]
  - Drug ineffective [Unknown]
